FAERS Safety Report 9729038 (Version 4)
Quarter: 2014Q2

REPORT INFORMATION
  Report Type: Spontaneous
  Country: US (occurrence: US)
  Receive Date: 20131204
  Receipt Date: 20140521
  Transmission Date: 20141212
  Serious: Yes (Other)
  Sender: FDA-Public Use
  Company Number: US-BAYER-2013-145600

PATIENT
  Age: 35 Year
  Sex: Female
  Weight: 63.49 kg

DRUGS (2)
  1. YASMIN [Suspect]
     Dosage: UNK
     Dates: start: 2007, end: 2008
  2. MOTRIN [Concomitant]
     Dosage: UNK
     Dates: start: 20080102

REACTIONS (4)
  - Injury [None]
  - Peripheral artery thrombosis [None]
  - Emotional distress [None]
  - Mental disorder [None]
